FAERS Safety Report 9054326 (Version 1)
Quarter: 2013Q1

REPORT INFORMATION
  Report Type: Spontaneous
  Country: BR (occurrence: BR)
  Receive Date: 20130208
  Receipt Date: 20130208
  Transmission Date: 20140127
  Serious: Yes (Hospitalization, Other)
  Sender: FDA-Public Use
  Company Number: PHHY2013BR010326

PATIENT
  Age: 83 None
  Sex: Female
  Weight: 52 kg

DRUGS (9)
  1. APRESOLINE [Suspect]
     Indication: HYPERTENSION
     Dosage: 1 DF, TID
     Route: 048
  2. APRESOLINE [Suspect]
     Dosage: 0.5 DF, TID
     Route: 048
  3. SELOZOK [Suspect]
     Dosage: UNK
  4. ACETYLSALICYLIC ACID [Suspect]
     Dosage: UNK
  5. OMEPRAZOLE [Suspect]
     Dosage: UNK
  6. PURAN T4 [Suspect]
     Dosage: UNK
  7. ARADOIS [Suspect]
     Dosage: UNK
  8. DIACEREIN [Suspect]
     Dosage: UNK
  9. CALCIUM CARBONATE\CHOLECALCIFEROL [Suspect]
     Dosage: UNK

REACTIONS (4)
  - Respiratory tract infection [Recovering/Resolving]
  - Heart rate decreased [Recovering/Resolving]
  - Weight decreased [Not Recovered/Not Resolved]
  - Wrong technique in drug usage process [Unknown]
